FAERS Safety Report 12742530 (Version 1)
Quarter: 2016Q3

REPORT INFORMATION
  Report Type: Spontaneous
  Country: US (occurrence: US)
  Receive Date: 20160913
  Receipt Date: 20160913
  Transmission Date: 20161109
  Serious: Yes (Hospitalization)
  Sender: FDA-Public Use
  Company Number: None

PATIENT
  Age: 70 Year
  Sex: Male
  Weight: 66.8 kg

DRUGS (2)
  1. ACETAMINOPHEN. [Suspect]
     Active Substance: ACETAMINOPHEN
     Dosage: MG PO
     Route: 048
     Dates: start: 20151217
  2. SORAFENIB [Suspect]
     Active Substance: SORAFENIB
     Indication: HEPATOCELLULAR CARCINOMA
     Route: 048
     Dates: start: 20151230, end: 20160114

REACTIONS (4)
  - Jaundice [None]
  - Hyperbilirubinaemia [None]
  - Cholangitis [None]
  - Bile duct obstruction [None]

NARRATIVE: CASE EVENT DATE: 20160114
